FAERS Safety Report 9905296 (Version 1)
Quarter: 2014Q1

REPORT INFORMATION
  Report Type: Other
  Country: US (occurrence: US)
  Receive Date: 20140218
  Receipt Date: 20140218
  Transmission Date: 20141002
  Serious: Yes (Disabling)
  Sender: FDA-Public Use
  Company Number: US-ENDO PHARMACEUTICALS INC.-METO20130054

PATIENT
  Sex: Female

DRUGS (3)
  1. METOCLOPRAMIDE HYDROCHLORIDE [Suspect]
     Indication: NAUSEA
     Dosage: UNKNOWN
     Route: 048
     Dates: start: 200706, end: 2008
  2. METOCLOPRAMIDE HYDROCHLORIDE [Suspect]
     Dosage: UNKNOWN
     Route: 042
     Dates: start: 200203, end: 200905
  3. METOCLOPRAMIDE HYDROCHLORIDE [Suspect]
     Dosage: UNKNOWN
     Route: 048
     Dates: start: 200203, end: 200905

REACTIONS (3)
  - Tardive dyskinesia [Not Recovered/Not Resolved]
  - Extrapyramidal disorder [Not Recovered/Not Resolved]
  - Incorrect drug administration duration [Recovered/Resolved]
